FAERS Safety Report 4951981-9 (Version None)
Quarter: 2006Q1

REPORT INFORMATION
  Report Type: 
  Country: None (occurrence: None)
  Receive Date: 20060323
  Receipt Date: 20051024
  Transmission Date: 20060701
  Serious: Yes (Disabling)
  Sender: FDA-Public Use
  Company Number: AU-ROCHE-422620

PATIENT
  Age: 80 Year
  Sex: Male
  Weight: 82 kg

DRUGS (1)
  1. XELODA [Suspect]
     Route: 048
     Dates: start: 20050914, end: 20050927

REACTIONS (3)
  - DYSURIA [None]
  - URETHRAL ULCER [None]
  - URINE ABNORMALITY [None]
